FAERS Safety Report 9006798 (Version 1)
Quarter: 2013Q1

REPORT INFORMATION
  Report Type: Spontaneous
  Country: FR (occurrence: FR)
  Receive Date: 20130110
  Receipt Date: 20130110
  Transmission Date: 20140127
  Serious: Yes (Other)
  Sender: FDA-Public Use
  Company Number: FR-SANOFI-AVENTIS-2013SA000764

PATIENT
  Age: 49 Year
  Sex: Female

DRUGS (4)
  1. RIFADINE [Suspect]
     Indication: INFECTION
     Route: 042
     Dates: start: 20120913, end: 20120920
  2. METHADONE [Interacting]
     Indication: TOXIC SKIN ERUPTION
     Route: 048
  3. METHADONE [Interacting]
     Indication: TOXIC SKIN ERUPTION
     Dosage: INCREASE OF 20 MG
     Route: 048
  4. DEPAKINE [Concomitant]
     Indication: EPILEPSY
     Route: 048

REACTIONS (2)
  - Withdrawal syndrome [Recovered/Resolved]
  - Drug interaction [Unknown]
